FAERS Safety Report 19988188 (Version 5)
Quarter: 2023Q2

REPORT INFORMATION
  Report Type: Spontaneous
  Country: JP (occurrence: JP)
  Receive Date: 20211022
  Receipt Date: 20230623
  Transmission Date: 20230722
  Serious: Yes (Hospitalization, Other)
  Sender: FDA-Public Use
  Company Number: JP-ELI_LILLY_AND_COMPANY-JP202103003309

PATIENT
  Age: 9 Year
  Sex: Female
  Weight: 31.3 kg

DRUGS (16)
  1. ADCIRCA [Suspect]
     Active Substance: TADALAFIL
     Indication: Pulmonary arterial hypertension
     Dosage: 30 MG, DAILY
     Route: 048
     Dates: start: 20170415
  2. ADCIRCA [Suspect]
     Active Substance: TADALAFIL
     Dosage: 40 MG, DAILY
     Route: 048
  3. UPTRAVI [Suspect]
     Active Substance: SELEXIPAG
     Indication: Pulmonary arterial hypertension
     Dosage: 0.11 MG, BID
     Route: 048
     Dates: start: 20171229, end: 20180108
  4. UPTRAVI [Suspect]
     Active Substance: SELEXIPAG
     Dosage: 0.22 MG, BID
     Route: 048
     Dates: start: 20180109, end: 20180204
  5. UPTRAVI [Suspect]
     Active Substance: SELEXIPAG
     Dosage: 0.33 MG, BID
     Route: 048
     Dates: start: 20180205, end: 20180415
  6. UPTRAVI [Suspect]
     Active Substance: SELEXIPAG
     Dosage: 0.44 MG, BID
     Route: 048
     Dates: start: 20180416, end: 20180520
  7. UPTRAVI [Suspect]
     Active Substance: SELEXIPAG
     Dosage: 0.55 MG, BID
     Route: 048
     Dates: start: 20180521, end: 20180617
  8. UPTRAVI [Suspect]
     Active Substance: SELEXIPAG
     Dosage: 0.66 MG, BID
     Route: 048
     Dates: start: 20180618, end: 20180909
  9. UPTRAVI [Suspect]
     Active Substance: SELEXIPAG
     Dosage: 0.77 MG, BID
     Route: 048
     Dates: start: 20180910, end: 20181001
  10. UPTRAVI [Suspect]
     Active Substance: SELEXIPAG
     Dosage: 0.88 MG, BID
     Route: 048
     Dates: start: 20181002, end: 20181029
  11. UPTRAVI [Suspect]
     Active Substance: SELEXIPAG
     Dosage: 1 MG, BID
     Route: 048
     Dates: start: 20181030
  12. UPTRAVI [Suspect]
     Active Substance: SELEXIPAG
     Dosage: 2.4 MG, DAILY
     Route: 048
  13. UPTRAVI [Suspect]
     Active Substance: SELEXIPAG
     Dosage: 1.4 MG, BID
     Route: 048
     Dates: start: 20210614, end: 20220529
  14. UPTRAVI [Suspect]
     Active Substance: SELEXIPAG
     Dosage: 1.6 MG, BID
     Route: 048
     Dates: start: 20220530
  15. OPSUMIT [Concomitant]
     Active Substance: MACITENTAN
     Indication: Pulmonary arterial hypertension
     Dosage: 5 MG, DAILY
     Route: 065
  16. OPSUMIT [Concomitant]
     Active Substance: MACITENTAN
     Dosage: 10 MG, DAILY
     Route: 065

REACTIONS (15)
  - Anaemia [Recovering/Resolving]
  - Right ventricular failure [Recovering/Resolving]
  - Cardiac failure [Recovering/Resolving]
  - Heavy menstrual bleeding [Recovered/Resolved]
  - Arthralgia [Recovered/Resolved]
  - Asteatosis [Recovered/Resolved]
  - Asthma [Recovered/Resolved]
  - Cough [Unknown]
  - Off label use [Unknown]
  - Nausea [Recovering/Resolving]
  - Nausea [Recovered/Resolved]
  - Headache [Recovered/Resolved]
  - Headache [Recovered/Resolved]
  - Headache [Recovering/Resolving]
  - Rhinorrhoea [Unknown]

NARRATIVE: CASE EVENT DATE: 20180101
